FAERS Safety Report 10016666 (Version 2)
Quarter: 2014Q2

REPORT INFORMATION
  Report Type: Spontaneous
  Country: AU (occurrence: AU)
  Receive Date: 20140317
  Receipt Date: 20140418
  Transmission Date: 20141212
  Serious: Yes (Other)
  Sender: FDA-Public Use
  Company Number: AU-JNJFOC-20140303185

PATIENT
  Sex: Female

DRUGS (12)
  1. FENTANYL CITRATE [Suspect]
     Indication: ANAESTHESIA
     Route: 008
  2. PARACETAMOL [Suspect]
     Route: 048
  3. PARACETAMOL [Suspect]
     Indication: PROCEDURAL PAIN
     Route: 048
  4. TRAMADOL [Suspect]
     Indication: ANALGESIC THERAPY
     Dosage: 50 TO 100 MG PO TWO-HOURLY ON DEMAND (MAXIMUM DOSE 600 MG ACROSS 24 HOURS).
     Route: 048
  5. PARECOXIB [Suspect]
     Indication: PROCEDURAL PAIN
     Route: 042
  6. CELECOXIB [Suspect]
     Indication: PROCEDURAL PAIN
     Route: 048
  7. PARACETAMOL [Suspect]
     Indication: PROCEDURAL PAIN
     Route: 042
  8. PETHIDINE [Suspect]
     Indication: PROCEDURAL PAIN
     Dosage: 300MG IN 60 ML NORMAL SALINE AND DELIVERING 4ML (20MG) ON DEMAND AT A 15 MINUTE LOCKOUT INTERVAL.
     Route: 008
  9. HYPERBARIC BUPIVACAINE [Suspect]
     Indication: ANAESTHESIA
     Dosage: 2.1 TO 2.5ML
     Route: 008
  10. NITROUS OXIDE [Suspect]
     Indication: PAIN
     Route: 065
  11. PLACEBO [Suspect]
     Indication: ANAESTHESIA
     Route: 065
  12. PLACEBO [Suspect]
     Indication: ANAESTHESIA
     Route: 065

REACTIONS (7)
  - Respiratory depression [Unknown]
  - Sedation [Unknown]
  - Exposure during pregnancy [Unknown]
  - Urinary retention [Unknown]
  - Pruritus [Unknown]
  - Off label use [Unknown]
  - Nausea [Unknown]
